FAERS Safety Report 6902460-0 (Version None)
Quarter: 2010Q3

REPORT INFORMATION
  Report Type: 
  Country: None (occurrence: None)
  Receive Date: 20100802
  Receipt Date: 20100802
  Transmission Date: 20110219
  Serious: Yes (Life-Threatening)
  Sender: FDA-Public Use
  Company Number: None

PATIENT
  Age: 72 Year
  Sex: Female
  Weight: 108.8633 kg

DRUGS (1)
  1. LISINOPRIL [Suspect]
     Indication: BLOOD PRESSURE
     Dosage: 1 DAILY PO
     Route: 048
     Dates: start: 20080101, end: 20100714

REACTIONS (3)
  - DRUG HYPERSENSITIVITY [None]
  - LIP SWELLING [None]
  - SWELLING FACE [None]
